FAERS Safety Report 7794887-2 (Version None)
Quarter: 2011Q4

REPORT INFORMATION
  Report Type: 
  Country: None (occurrence: None)
  Receive Date: 20111004
  Receipt Date: 20110923
  Transmission Date: 20120403
  Serious: Yes (Hospitalization)
  Sender: FDA-Public Use
  Company Number: PHHY2011FR80210

PATIENT
  Sex: Female

DRUGS (11)
  1. MYCOPHENOLATE MOFETIL (CELLCEPT) [Suspect]
     Dosage: 1500 MG, BID
     Route: 048
     Dates: start: 20110722
  2. TRAMADOL HCL [Suspect]
     Dosage: 100 MG, QD
     Route: 048
     Dates: start: 20110728, end: 20110823
  3. DIURETICS [Concomitant]
     Dosage: UNK UKN, UNK
  4. NEORAL [Suspect]
     Dosage: 500 MG, DAILY
     Dates: start: 20110821, end: 20110823
  5. NEORAL [Suspect]
     Dosage: 200 MG, DAILY
     Dates: start: 20110810
  6. VALGANCICLOVIR [Suspect]
     Dosage: 450MG 2 DF, DAILY
     Route: 048
     Dates: start: 20110803
  7. ORBENIN CAP [Suspect]
     Dosage: UNK UKN, UNK
  8. NEORAL [Suspect]
     Indication: LIVER TRANSPLANT
     Dosage: UNK UKN, UNK
     Dates: start: 20110728, end: 20110803
  9. NEORAL [Suspect]
     Dosage: 400 MG, DAILY
     Dates: start: 20110820
  10. FLUCONAZOLE [Suspect]
     Dosage: UNK UKN, UNK
     Dates: start: 20110720, end: 20110823
  11. SOLU-MEDROL [Concomitant]
     Dosage: UNK UKN, UNK

REACTIONS (8)
  - RENAL FAILURE ACUTE [None]
  - OPSOCLONUS MYOCLONUS [None]
  - AGITATION [None]
  - ENCEPHALOPATHY [None]
  - STATUS EPILEPTICUS [None]
  - CEREBELLAR SYNDROME [None]
  - NEUROTOXICITY [None]
  - EYE MOVEMENT DISORDER [None]
